FAERS Safety Report 23369831 (Version 1)
Quarter: 2024Q1

REPORT INFORMATION
  Report Type: Spontaneous
  Country: CN (occurrence: CN)
  Receive Date: 20240105
  Receipt Date: 20240105
  Transmission Date: 20240410
  Serious: Yes (Life-Threatening)
  Sender: FDA-Public Use
  Company Number: CN-PFIZER INC-PV202300209681

PATIENT
  Age: 53 Year
  Sex: Male
  Weight: 60 kg

DRUGS (1)
  1. AVIBACTAM SODIUM\CEFTAZIDIME [Suspect]
     Active Substance: AVIBACTAM SODIUM\CEFTAZIDIME
     Indication: Anti-infective therapy
     Dosage: 0.94 G, ONCE/TWO DAYS
     Route: 041
     Dates: start: 20231215, end: 20231219

REACTIONS (3)
  - Nervous system disorder [Recovering/Resolving]
  - Seizure [Recovering/Resolving]
  - Mutism [Recovering/Resolving]

NARRATIVE: CASE EVENT DATE: 20231219
